FAERS Safety Report 15895154 (Version 1)
Quarter: 2019Q1

REPORT INFORMATION
  Report Type: Other
  Country: US (occurrence: US)
  Receive Date: 20190131
  Receipt Date: 20190131
  Transmission Date: 20190417
  Serious: Yes (Other)
  Sender: FDA-Public Use
  Company Number: US-INTERCEPT-PMOCA2018002031

PATIENT

DRUGS (7)
  1. GABAPENTIN. [Concomitant]
     Active Substance: GABAPENTIN
  2. ADVIL [Concomitant]
     Active Substance: IBUPROFEN
  3. VITAMINS [Concomitant]
     Active Substance: VITAMINS
  4. URSODIOL. [Concomitant]
     Active Substance: URSODIOL
  5. OCALIVA [Suspect]
     Active Substance: OBETICHOLIC ACID
     Indication: PRIMARY BILIARY CHOLANGITIS
     Dosage: 5 MG, QD
     Route: 048
     Dates: start: 20181128
  6. OMEPRAZOLE. [Concomitant]
     Active Substance: OMEPRAZOLE
  7. VITAMIN D2 [Concomitant]
     Active Substance: ERGOCALCIFEROL

REACTIONS (12)
  - Ocular icterus [Unknown]
  - Decreased appetite [Unknown]
  - Nausea [Unknown]
  - Fatigue [Unknown]
  - Headache [Unknown]
  - Arthralgia [Unknown]
  - Abdominal pain upper [Unknown]
  - Disease progression [Unknown]
  - Swelling [Unknown]
  - Epistaxis [Unknown]
  - Anger [Unknown]
  - Depression [Unknown]

NARRATIVE: CASE EVENT DATE: 201812
